FAERS Safety Report 12620377 (Version 1)
Quarter: 2016Q3

REPORT INFORMATION
  Report Type: Spontaneous
  Country: CA (occurrence: CA)
  Receive Date: 20160803
  Receipt Date: 20160803
  Transmission Date: 20161109
  Serious: Yes (Other)
  Sender: FDA-Public Use
  Company Number: CA-BEH-2016071854

PATIENT
  Age: 62 Year
  Sex: Female

DRUGS (2)
  1. ALBUREX [Suspect]
     Active Substance: ALBUMIN HUMAN
     Indication: PRODUCT USED FOR UNKNOWN INDICATION
     Dosage: 10 UNK, UNK
     Route: 042
  2. ALBUREX [Suspect]
     Active Substance: ALBUMIN HUMAN
     Dosage: 100 UNK, UNK
     Route: 042

REACTIONS (4)
  - Heart rate decreased [Recovered/Resolved]
  - Blood pressure systolic increased [Recovered/Resolved]
  - Body temperature increased [Recovered/Resolved]
  - Febrile nonhaemolytic transfusion reaction [Recovered/Resolved]
